FAERS Safety Report 15862300 (Version 1)
Quarter: 2018Q4

REPORT INFORMATION
  Report Type: Spontaneous
  Country: US (occurrence: US)
  Receive Date: 20181231
  Receipt Date: 20181231
  Transmission Date: 20190205
  Serious: No
  Sender: FDA-Public Use
  Company Number: None

PATIENT
  Age: 69 Year
  Sex: Male

DRUGS (1)
  1. GLEEVEC [Suspect]
     Active Substance: IMATINIB MESYLATE
     Dates: start: 20181201

REACTIONS (4)
  - Abdominal distension [None]
  - Decreased appetite [None]
  - Joint swelling [None]
  - Fatigue [None]

NARRATIVE: CASE EVENT DATE: 20181207
